FAERS Safety Report 18755873 (Version 2)
Quarter: 2021Q1

REPORT INFORMATION
  Report Type: Spontaneous
  Country: JP (occurrence: JP)
  Receive Date: 20210119
  Receipt Date: 20210308
  Transmission Date: 20210419
  Serious: Yes (Hospitalization, Other)
  Sender: FDA-Public Use
  Company Number: JP-009507513-2011JPN003561J

PATIENT
  Age: 66 Year
  Sex: Male

DRUGS (2)
  1. KEYTRUDA [Suspect]
     Active Substance: PEMBROLIZUMAB
     Indication: LUNG ADENOCARCINOMA STAGE IV
     Dosage: 200 MILLIGRAM, Q3W
     Route: 041
     Dates: start: 201801, end: 20190206
  2. ENTECAVIR. [Suspect]
     Active Substance: ENTECAVIR
     Indication: VIRAL HEPATITIS CARRIER
     Dosage: UNK
     Route: 065
     Dates: end: 201902

REACTIONS (2)
  - Skin disorder [Recovered/Resolved]
  - Type 1 diabetes mellitus [Recovered/Resolved]

NARRATIVE: CASE EVENT DATE: 2018
